FAERS Safety Report 4586616-0 (Version None)
Quarter: 2005Q1

REPORT INFORMATION
  Report Type: 
  Country: None (occurrence: None)
  Receive Date: 20050218
  Receipt Date: 20040713
  Transmission Date: 20050727
  Serious: No
  Sender: FDA-Public Use
  Company Number: US-BRISTOL-MYERS SQUIBB COMPANY-12641080

PATIENT
  Age: 71 Year
  Sex: Male
  Weight: 84 kg

DRUGS (16)
  1. TAXOL [Suspect]
     Indication: SMALL CELL LUNG CANCER STAGE UNSPECIFIED
     Route: 042
     Dates: start: 20040707, end: 20040707
  2. CARBOPLATIN [Suspect]
     Indication: SMALL CELL LUNG CANCER STAGE UNSPECIFIED
     Route: 042
     Dates: start: 20040707, end: 20040707
  3. COMPAZINE [Concomitant]
     Indication: PREMEDICATION
     Dates: start: 20040707, end: 20040707
  4. DEXAMETHASONE [Concomitant]
     Indication: PREMEDICATION
     Dates: start: 20040707, end: 20040707
  5. BENADRYL [Concomitant]
     Indication: PREMEDICATION
     Dates: start: 20040707, end: 20040707
  6. ZOFRAN [Concomitant]
     Indication: PREMEDICATION
     Dates: start: 20040707, end: 20040707
  7. CIMETIDINE [Concomitant]
     Indication: PREMEDICATION
     Dates: start: 20040707, end: 20040707
  8. LORAZEPAM [Concomitant]
  9. ZOLOFT [Concomitant]
  10. COMPAZINE [Concomitant]
  11. LISINOPRIL [Concomitant]
  12. KEFLEX [Concomitant]
  13. MOTRIN [Concomitant]
  14. OXYCODONE [Concomitant]
  15. SIMVASTATIN [Concomitant]
  16. ZOFRAN [Concomitant]

REACTIONS (1)
  - EXTRAVASATION [None]
